FAERS Safety Report 5801054-8 (Version None)
Quarter: 2008Q3

REPORT INFORMATION
  Report Type: 
  Country: None (occurrence: None)
  Receive Date: 20080704
  Receipt Date: 20080624
  Transmission Date: 20090109
  Serious: Yes (Other)
  Sender: FDA-Public Use
  Company Number: MX-ELI_LILLY_AND_COMPANY-MX200711005906

PATIENT
  Age: 28 Year
  Sex: Female

DRUGS (7)
  1. HUMALOG [Suspect]
     Indication: DIABETES MELLITUS
     Dosage: 24 IU, EACH MORNING
     Route: 058
     Dates: start: 20071123
  2. HUMALOG [Suspect]
     Dosage: 12 IU, EACH EVENING
     Route: 058
     Dates: start: 20071123
  3. HUMALOG [Suspect]
     Dosage: 34 IU, UNKNOWN
     Route: 065
     Dates: start: 20080101
  4. HUMALOG [Suspect]
     Dosage: 26 IU, UNKNOWN
     Route: 065
     Dates: start: 20080101
  5. HUMALOG [Suspect]
     Dosage: 16 IU, EACH MORNING
     Route: 065
     Dates: start: 20080601
  6. HUMALOG [Suspect]
     Dosage: 10 IU, EACH EVENING
     Route: 065
     Dates: start: 20080601
  7. IRON [Concomitant]
     Dosage: UNK, UNKNOWN
     Route: 065

REACTIONS (5)
  - ABORTION THREATENED [None]
  - BLOOD GLUCOSE INCREASED [None]
  - DRUG EXPOSURE DURING PREGNANCY [None]
  - DRUG EXPOSURE VIA BREAST MILK [None]
  - PRE-ECLAMPSIA [None]
